FAERS Safety Report 6176072-3 (Version None)
Quarter: 2009Q2

REPORT INFORMATION
  Report Type: 
  Country: None (occurrence: None)
  Receive Date: 20090501
  Receipt Date: 20090420
  Transmission Date: 20091009
  Serious: Yes (Other)
  Sender: FDA-Public Use
  Company Number: US-PFIZER INC-2005033141

PATIENT
  Age: 42 Year
  Sex: Male
  Weight: 88 kg

DRUGS (4)
  1. DILANTIN-125 [Suspect]
     Indication: CONVULSION
     Route: 048
  2. DILANTIN [Suspect]
     Indication: CONVULSION
     Dosage: 100 MG, UNK
     Dates: start: 20040101
  3. FLONASE [Concomitant]
     Indication: MULTIPLE ALLERGIES
     Route: 065
  4. BENADRYL [Concomitant]
     Indication: MULTIPLE ALLERGIES
     Route: 065

REACTIONS (10)
  - CONVULSION [None]
  - DEPRESSED MOOD [None]
  - DIZZINESS [None]
  - FEELING ABNORMAL [None]
  - HAEMORRHAGE [None]
  - INFLUENZA [None]
  - INSOMNIA [None]
  - NERVOUSNESS [None]
  - POLYDIPSIA [None]
  - STRESS [None]
